FAERS Safety Report 5531141-3 (Version None)
Quarter: 2007Q4

REPORT INFORMATION
  Report Type: 
  Country: None (occurrence: None)
  Receive Date: 20071130
  Receipt Date: 20071120
  Transmission Date: 20080405
  Serious: Yes (Other)
  Sender: FDA-Public Use
  Company Number: US-PFIZER INC-2007098615

PATIENT
  Sex: Female
  Weight: 100 kg

DRUGS (4)
  1. DILANTIN [Suspect]
     Indication: CONVULSION
     Dosage: DAILY DOSE:400MG-FREQ:EVERY OTHER DAY
  2. DILANTIN [Suspect]
     Dosage: DAILY DOSE:500MG-FREQ:EVERY OTHER DAY
  3. PROZAC [Concomitant]
  4. METOPROLOL [Concomitant]

REACTIONS (8)
  - BALANCE DISORDER [None]
  - BRONCHITIS [None]
  - CONVULSION [None]
  - COORDINATION ABNORMAL [None]
  - DIZZINESS [None]
  - INAPPROPRIATE SCHEDULE OF DRUG ADMINISTRATION [None]
  - MALAISE [None]
  - PHARMACEUTICAL PRODUCT COMPLAINT [None]
